FAERS Safety Report 5520503-6 (Version None)
Quarter: 2007Q4

REPORT INFORMATION
  Report Type: 
  Country: None (occurrence: None)
  Receive Date: 20071119
  Receipt Date: 20071107
  Transmission Date: 20080405
  Serious: Yes (Life-Threatening, Hospitalization)
  Sender: FDA-Public Use
  Company Number: FR-ELI_LILLY_AND_COMPANY-FR200711001541

PATIENT
  Age: 81 Year
  Sex: Female

DRUGS (1)
  1. ALIMTA [Suspect]
     Indication: OVARIAN CANCER
     Dosage: UNK, UNKNOWN
     Route: 042
     Dates: start: 20050526, end: 20060404

REACTIONS (3)
  - CORONARY ARTERY DISEASE [None]
  - MITRAL VALVE INCOMPETENCE [None]
  - PAPILLARY MUSCLE RUPTURE [None]
